FAERS Safety Report 11862969 (Version 1)
Quarter: 2015Q4

REPORT INFORMATION
  Report Type: Report from Study
  Country: US (occurrence: US)
  Receive Date: 20151223
  Receipt Date: 20151223
  Transmission Date: 20160305
  Serious: Yes (Other)
  Sender: FDA-Public Use
  Company Number: US-AMGEN-USASL2015135433

PATIENT
  Age: 32 Year
  Sex: Female

DRUGS (3)
  1. METHOTREXATE [Concomitant]
     Active Substance: METHOTREXATE
     Dosage: UNK
  2. ENBREL [Suspect]
     Active Substance: ETANERCEPT
     Indication: RHEUMATOID ARTHRITIS
     Dosage: 50 MG, QWK
     Route: 065
     Dates: start: 20150225
  3. PLAQUENIL [Concomitant]
     Active Substance: HYDROXYCHLOROQUINE SULFATE
     Dosage: UNK

REACTIONS (8)
  - Encephalopathy [Unknown]
  - Cognitive disorder [Unknown]
  - Migraine [Unknown]
  - Activities of daily living impaired [Unknown]
  - Brain oedema [Unknown]
  - Laboratory test abnormal [Unknown]
  - Dysarthria [Unknown]
  - Seizure [Unknown]

NARRATIVE: CASE EVENT DATE: 2015
